FAERS Safety Report 14259660 (Version 3)
Quarter: 2018Q1

REPORT INFORMATION
  Report Type: Spontaneous
  Country: JP (occurrence: JP)
  Receive Date: 20171207
  Receipt Date: 20180202
  Transmission Date: 20180508
  Serious: Yes (Death, Other)
  Sender: FDA-Public Use
  Company Number: JP-PFIZER INC-2017522979

PATIENT
  Age: 85 Year
  Sex: Female

DRUGS (2)
  1. CELECOX [Suspect]
     Active Substance: CELECOXIB
     Indication: ARTHRALGIA
  2. CELECOX [Suspect]
     Active Substance: CELECOXIB
     Indication: SPINAL DISORDER
     Dosage: 200 MG, 1X/DAY

REACTIONS (2)
  - Condition aggravated [Fatal]
  - Pancreatic carcinoma [Fatal]
